FAERS Safety Report 23119321 (Version 1)
Quarter: 2023Q4

REPORT INFORMATION
  Report Type: Report from Study
  Country: US (occurrence: US)
  Receive Date: 20231028
  Receipt Date: 20231028
  Transmission Date: 20240110
  Serious: Yes (Death, Hospitalization)
  Sender: FDA-Public Use
  Company Number: US-ABBVIE-5471297

PATIENT
  Age: 81 Year
  Sex: Female
  Weight: 45.359 kg

DRUGS (1)
  1. CREON [Suspect]
     Active Substance: PANCRELIPASE AMYLASE\PANCRELIPASE LIPASE\PANCRELIPASE PROTEASE
     Indication: Pancreatic carcinoma
     Dosage: FORM STRENGTH: 12000 UNIT   FREQUENCY TEXT: 2 CAPSULES PER MEAL, 1 CAPSULE PER SNACK
     Route: 048
     Dates: start: 2022, end: 20231019

REACTIONS (2)
  - Death [Fatal]
  - Hypophagia [Not Recovered/Not Resolved]

NARRATIVE: CASE EVENT DATE: 20230901
